FAERS Safety Report 17953493 (Version 1)
Quarter: 2020Q2

REPORT INFORMATION
  Report Type: Spontaneous
  Country: DE (occurrence: DE)
  Receive Date: 20200628
  Receipt Date: 20200628
  Transmission Date: 20200714
  Serious: Yes (Death)
  Sender: FDA-Public Use
  Company Number: NVSC2020DE180881

PATIENT
  Age: 70 Year
  Sex: Male

DRUGS (14)
  1. PREDNISOLONE. [Suspect]
     Active Substance: PREDNISOLONE
     Indication: EPSTEIN-BARR VIRUS ASSOCIATED LYMPHOMA
     Dosage: UNK
     Route: 065
  2. VINCRISTINE [Suspect]
     Active Substance: VINCRISTINE
     Indication: ANGIOIMMUNOBLASTIC T-CELL LYMPHOMA
  3. OXALIPLATIN. [Suspect]
     Active Substance: OXALIPLATIN
     Indication: EPSTEIN-BARR VIRUS ASSOCIATED LYMPHOMA
     Dosage: UNK
     Route: 065
  4. RITUXIMAB. [Suspect]
     Active Substance: RITUXIMAB
     Indication: EPSTEIN-BARR VIRUS ASSOCIATED LYMPHOMA
     Dosage: UNK
     Route: 065
  5. DOXIL [Suspect]
     Active Substance: DOXORUBICIN HYDROCHLORIDE
     Indication: ANGIOIMMUNOBLASTIC T-CELL LYMPHOMA
     Dosage: LIPOSOMAL INFUSION
     Route: 065
  6. PREDNISONE. [Suspect]
     Active Substance: PREDNISONE
     Indication: DIFFUSE LARGE B-CELL LYMPHOMA
     Dosage: UNK
     Route: 065
  7. CAELYX [Suspect]
     Active Substance: DOXORUBICIN HYDROCHLORIDE
     Indication: DIFFUSE LARGE B-CELL LYMPHOMA
     Dosage: UNK
     Route: 065
  8. OXALIPLATIN. [Suspect]
     Active Substance: OXALIPLATIN
     Indication: ANGIOIMMUNOBLASTIC T-CELL LYMPHOMA
  9. VINCRISTINE [Suspect]
     Active Substance: VINCRISTINE
     Indication: EPSTEIN-BARR VIRUS ASSOCIATED LYMPHOMA
     Dosage: UNK
     Route: 065
  10. GEMCITABINE. [Suspect]
     Active Substance: GEMCITABINE
     Indication: EPSTEIN-BARR VIRUS ASSOCIATED LYMPHOMA
     Dosage: UNK
     Route: 065
  11. PREDNISONE. [Suspect]
     Active Substance: PREDNISONE
     Indication: ANGIOIMMUNOBLASTIC T-CELL LYMPHOMA
  12. ENDOXAN [Suspect]
     Active Substance: CYCLOPHOSPHAMIDE
     Indication: DIFFUSE LARGE B-CELL LYMPHOMA
     Dosage: UNK
     Route: 065
  13. GEMCITABINE. [Suspect]
     Active Substance: GEMCITABINE
     Indication: ANGIOIMMUNOBLASTIC T-CELL LYMPHOMA
  14. RITUXIMAB. [Suspect]
     Active Substance: RITUXIMAB
     Indication: ANGIOIMMUNOBLASTIC T-CELL LYMPHOMA

REACTIONS (4)
  - Multiple organ dysfunction syndrome [Fatal]
  - Off label use [Fatal]
  - Product use in unapproved indication [Fatal]
  - Sepsis [Fatal]
